FAERS Safety Report 25931732 (Version 1)
Quarter: 2025Q4

REPORT INFORMATION
  Report Type: Spontaneous
  Country: US (occurrence: US)
  Receive Date: 20251016
  Receipt Date: 20251016
  Transmission Date: 20260117
  Serious: Yes (Disabling)
  Sender: NOVO NORDISK
  Company Number: US-NOVOPROD-1536695

PATIENT
  Age: 63 Year
  Sex: Female

DRUGS (2)
  1. NOVOLOG [Suspect]
     Active Substance: INSULIN ASPART
     Indication: Diabetes mellitus
     Dosage: UNK
  2. LANTUS SOLOSTAR [Concomitant]
     Active Substance: INSULIN GLARGINE
     Indication: Diabetes mellitus
     Dosage: UNK

REACTIONS (2)
  - Intervertebral disc protrusion [Unknown]
  - Spinal stenosis [Unknown]

NARRATIVE: CASE EVENT DATE: 20100101
